FAERS Safety Report 15930888 (Version 1)
Quarter: 2019Q1

REPORT INFORMATION
  Report Type: Spontaneous
  Country: US (occurrence: US)
  Receive Date: 20190207
  Receipt Date: 20190207
  Transmission Date: 20190417
  Serious: Yes (Other)
  Sender: FDA-Public Use
  Company Number: US-SCIEGEN PHARMACEUTICALS INC-2019SCISPO00088

PATIENT

DRUGS (7)
  1. BUPROPION. [Suspect]
     Active Substance: BUPROPION
     Indication: PSORIATIC ARTHROPATHY
     Dosage: 100 MG ONE TABLET
     Route: 065
  2. BUPROPION HYDROCHLORIDE. [Suspect]
     Active Substance: BUPROPION HYDROCHLORIDE
     Dosage: UNK
     Route: 065
  3. ENBREL [Concomitant]
     Active Substance: ETANERCEPT
     Indication: PRODUCT USED FOR UNKNOWN INDICATION
     Dosage: UNK (OVER A YEAR)
     Route: 065
  4. BUPROPION. [Suspect]
     Active Substance: BUPROPION
     Dosage: 200 MG
     Route: 065
  5. BUPROPION HYDROCHLORIDE. [Suspect]
     Active Substance: BUPROPION HYDROCHLORIDE
     Indication: PSORIATIC ARTHROPATHY
     Dosage: 150 MG TWICE DAILY
     Route: 065
     Dates: start: 2017
  6. BUPROPION HYDROCHLORIDE. [Suspect]
     Active Substance: BUPROPION HYDROCHLORIDE
     Dosage: 150 MG ONE TABLET
     Route: 065
     Dates: start: 20190125
  7. VITAMIN B12 [Concomitant]
     Active Substance: CYANOCOBALAMIN
     Indication: PRODUCT USED FOR UNKNOWN INDICATION
     Dosage: UNK
     Route: 065

REACTIONS (11)
  - Dizziness [Unknown]
  - Syncope [Unknown]
  - Wrist fracture [Unknown]
  - Scratch [Unknown]
  - Fall [Unknown]
  - Product use in unapproved indication [Unknown]
  - Head injury [Unknown]
  - Haemorrhage [Unknown]
  - Loss of consciousness [Unknown]
  - Multiple fractures [Unknown]
  - Face injury [Unknown]

NARRATIVE: CASE EVENT DATE: 20190120
